FAERS Safety Report 9065746 (Version 1)
Quarter: 2013Q1

REPORT INFORMATION
  Report Type: Report from Study
  Country: US (occurrence: US)
  Receive Date: 20130214
  Receipt Date: 20130214
  Transmission Date: 20140127
  Serious: No
  Sender: FDA-Public Use
  Company Number: US-VERTEX PHARMACEUTICALS INC.-2013-002005

PATIENT
  Sex: Female
  Weight: 88 kg

DRUGS (4)
  1. VX-950 (TELAPREVIR) [Suspect]
     Indication: HEPATITIS C
     Dosage: 750 MG, TID
     Route: 048
     Dates: start: 20121018, end: 201301
  2. PEGINTERFERON ALFA [Suspect]
     Indication: HEPATITIS C
     Dosage: 150 ?G, QW
     Route: 058
     Dates: start: 20121018
  3. PEGINTERFERON ALFA [Suspect]
     Dosage: 90 ?G, QW
     Route: 058
  4. RIBASPHERE [Suspect]
     Indication: HEPATITIS C
     Dosage: 600 MG AM, 400 MG PM
     Route: 048
     Dates: start: 20121018

REACTIONS (6)
  - Weight decreased [Unknown]
  - Dry skin [Unknown]
  - Hair texture abnormal [Unknown]
  - Fatigue [Unknown]
  - Haematocrit decreased [Unknown]
  - Haemoglobin decreased [Unknown]
